FAERS Safety Report 24361950 (Version 3)
Quarter: 2024Q4

REPORT INFORMATION
  Report Type: Spontaneous
  Country: RU (occurrence: RU)
  Receive Date: 20240925
  Receipt Date: 20241018
  Transmission Date: 20250115
  Serious: Yes (Other)
  Sender: RANBAXY
  Company Number: RU-SUN PHARMACEUTICAL INDUSTRIES LTD-2024R1-469505

PATIENT
  Age: 51 Year
  Sex: Female

DRUGS (1)
  1. ASPIRIN [Suspect]
     Active Substance: ASPIRIN
     Indication: Product used for unknown indication
     Dosage: UNK
     Route: 065

REACTIONS (6)
  - NSAID exacerbated respiratory disease [Unknown]
  - Asthma [Unknown]
  - Sinusitis [Unknown]
  - Nasal polyps [Unknown]
  - Drug hypersensitivity [Unknown]
  - Eosinophilia [Unknown]
